FAERS Safety Report 5508572-0 (Version None)
Quarter: 2007Q4

REPORT INFORMATION
  Report Type: 
  Country: None (occurrence: None)
  Receive Date: 20071031
  Receipt Date: 20070714
  Transmission Date: 20080405
  Serious: No
  Sender: FDA-Public Use
  Company Number: 2007PV033158

PATIENT
  Age: 69 Year
  Sex: Female

DRUGS (4)
  1. SYMLIN [Suspect]
     Indication: TYPE 1 DIABETES MELLITUS
     Dosage: 30 MCG;TID;SC   45 MCG;SC   30 MCG;SC   15 MCG;SC
     Route: 058
     Dates: start: 20070101
  2. SYMLIN [Suspect]
     Indication: TYPE 1 DIABETES MELLITUS
     Dosage: 30 MCG;TID;SC   45 MCG;SC   30 MCG;SC   15 MCG;SC
     Route: 058
     Dates: start: 20070101
  3. SYMLIN [Suspect]
     Indication: TYPE 1 DIABETES MELLITUS
     Dosage: 30 MCG;TID;SC   45 MCG;SC   30 MCG;SC   15 MCG;SC
     Route: 058
     Dates: start: 20070101
  4. SYMLIN [Suspect]
     Indication: TYPE 1 DIABETES MELLITUS
     Dosage: 30 MCG;TID;SC   45 MCG;SC   30 MCG;SC   15 MCG;SC
     Route: 058
     Dates: start: 20070417

REACTIONS (3)
  - ANOREXIA [None]
  - NAUSEA [None]
  - WEIGHT DECREASED [None]
